FAERS Safety Report 8579636-2 (Version None)
Quarter: 2012Q3

REPORT INFORMATION
  Report Type: 
  Country: None (occurrence: None)
  Receive Date: 20120808
  Receipt Date: 20120801
  Transmission Date: 20120928
  Serious: Yes (Hospitalization)
  Sender: FDA-Public Use
  Company Number: PHHY2012BR066363

PATIENT
  Age: 95 Year
  Sex: Female

DRUGS (1)
  1. CIPROFLOXACIN [Suspect]
     Dosage: 500 MG, BID
     Route: 048

REACTIONS (8)
  - HAEMATEMESIS [None]
  - SENSATION OF FOREIGN BODY [None]
  - FOOD INTERACTION [None]
  - MELAENA [None]
  - OESOPHAGEAL ULCER [None]
  - CHEST PAIN [None]
  - LABELLED DRUG-FOOD INTERACTION MEDICATION ERROR [None]
  - OESOPHAGEAL ULCER HAEMORRHAGE [None]
